FAERS Safety Report 17472210 (Version 2)
Quarter: 2020Q1

REPORT INFORMATION
  Report Type: Spontaneous
  Country: US (occurrence: US)
  Receive Date: 20200228
  Receipt Date: 20200228
  Transmission Date: 20200409
  Serious: Yes (Death, Hospitalization)
  Sender: FDA-Public Use
  Company Number: US-JNJFOC-20200228279

PATIENT
  Age: 18 Year
  Sex: Female

DRUGS (1)
  1. PARACETAMOL [Suspect]
     Active Substance: ACETAMINOPHEN
     Indication: PRODUCT USED FOR UNKNOWN INDICATION
     Dosage: 48 OF THE 500 MG TABLETS
     Route: 048

REACTIONS (7)
  - Intentional overdose [Fatal]
  - White blood cell count increased [Fatal]
  - Brain oedema [Fatal]
  - Blood lactic acid increased [Fatal]
  - Blood bicarbonate decreased [Fatal]
  - Completed suicide [Fatal]
  - Acute hepatic failure [Fatal]
